FAERS Safety Report 13791264 (Version 1)
Quarter: 2017Q3

REPORT INFORMATION
  Report Type: Report from Study
  Country: CO (occurrence: CO)
  Receive Date: 20170725
  Receipt Date: 20170725
  Transmission Date: 20171127
  Serious: Yes (Other)
  Sender: FDA-Public Use
  Company Number: CO-ELI_LILLY_AND_COMPANY-CO201707008675

PATIENT
  Age: 82 Year
  Sex: Male

DRUGS (1)
  1. CETUXIMAB. [Suspect]
     Active Substance: CETUXIMAB
     Indication: SQUAMOUS CELL CARCINOMA OF HEAD AND NECK
     Dosage: 400 MG, EVERY EIGHT DAYS
     Route: 042
     Dates: start: 20170210

REACTIONS (4)
  - Nausea [Unknown]
  - Vomiting [Unknown]
  - Somnolence [Unknown]
  - Asthenia [Unknown]

NARRATIVE: CASE EVENT DATE: 2017
